FAERS Safety Report 7070841-3 (Version None)
Quarter: 2010Q4

REPORT INFORMATION
  Report Type: 
  Country: None (occurrence: None)
  Receive Date: 20101027
  Receipt Date: 20101027
  Transmission Date: 20110411
  Serious: No
  Sender: FDA-Public Use
  Company Number: None

PATIENT
  Age: 1 Year
  Sex: Male
  Weight: 11.3399 kg

DRUGS (1)
  1. HYLAND'S TEETHING TABLETS N/A [Suspect]
     Indication: TEETHING
     Dosage: 2-3 TABLETS 4 TIMES/DAY PO
     Route: 048
     Dates: start: 20100923, end: 20101020

REACTIONS (3)
  - DISCOMFORT [None]
  - PRODUCT QUALITY ISSUE [None]
  - SCREAMING [None]
